FAERS Safety Report 5615236-1 (Version None)
Quarter: 2008Q1

REPORT INFORMATION
  Report Type: 
  Country: None (occurrence: None)
  Receive Date: 20080205
  Receipt Date: 20080205
  Transmission Date: 20080703
  Serious: Yes (Other)
  Sender: FDA-Public Use
  Company Number: None

PATIENT
  Age: 64 Year
  Sex: Male
  Weight: 68.0396 kg

DRUGS (1)
  1. RALTEGRAVIR [Suspect]
     Indication: HIV INFECTION
     Dosage: ONE TABLET BID PO
     Route: 048
     Dates: start: 20071221, end: 20080111

REACTIONS (2)
  - AGITATION [None]
  - DEPRESSION [None]
